FAERS Safety Report 10426320 (Version 1)
Quarter: 2014Q3

REPORT INFORMATION
  Report Type: Spontaneous
  Country: CA (occurrence: CA)
  Receive Date: 20140903
  Receipt Date: 20140903
  Transmission Date: 20150326
  Serious: Yes (Other)
  Sender: FDA-Public Use
  Company Number: CA-BAYER-2014-127319

PATIENT
  Sex: Male

DRUGS (3)
  1. COPAXONE [Concomitant]
     Active Substance: GLATIRAMER ACETATE
     Dosage: 20 MG, QD
     Route: 058
  2. TYSABRI [Concomitant]
     Active Substance: NATALIZUMAB
     Dosage: 300 MG, Q1MON
     Route: 042
  3. BETASERON [Suspect]
     Active Substance: INTERFERON BETA-1B
     Dosage: 8 MIU, QOD

REACTIONS (4)
  - Mobility decreased [None]
  - Hyperhidrosis [None]
  - Tremor [None]
  - Unevaluable event [None]
